FAERS Safety Report 10448880 (Version 4)
Quarter: 2015Q1

REPORT INFORMATION
  Report Type: Spontaneous
  Country: US (occurrence: US)
  Receive Date: 20140912
  Receipt Date: 20150115
  Transmission Date: 20150720
  Serious: Yes (Hospitalization)
  Sender: FDA-Public Use
  Company Number: US-BIOGENIDEC-2014BI091737

PATIENT
  Age: 58 Year
  Sex: Male

DRUGS (2)
  1. TECFIDERA [Suspect]
     Active Substance: DIMETHYL FUMARATE
     Indication: MULTIPLE SCLEROSIS
     Route: 048
     Dates: start: 201304
  2. NITROFURANTIN [Concomitant]
     Active Substance: NITROFURANTOIN

REACTIONS (6)
  - Catheter site haemorrhage [Recovered/Resolved]
  - Calculus bladder [Recovered/Resolved]
  - Decubitus ulcer [Recovered/Resolved]
  - Infection [Recovered/Resolved]
  - Bladder disorder [Not Recovered/Not Resolved]
  - Device related infection [Recovered/Resolved]

NARRATIVE: CASE EVENT DATE: 2014
